FAERS Safety Report 5541718-7 (Version None)
Quarter: 2007Q4

REPORT INFORMATION
  Report Type: 
  Country: None (occurrence: None)
  Receive Date: 20071205
  Receipt Date: 20071119
  Transmission Date: 20080405
  Serious: Yes (Hospitalization)
  Sender: FDA-Public Use
  Company Number: ALA_00028_2007

PATIENT
  Sex: Male

DRUGS (11)
  1. ROWASA [Suspect]
     Indication: DRUG USE FOR UNKNOWN INDICATION
     Dosage: (6 DF QD ORAL)
     Route: 048
  2. TRIFLUCAN (TRIFLUCAN - FLUCONAZOLE) 200 MG [Suspect]
     Indication: DRUG USE FOR UNKNOWN INDICATION
     Dosage: (DF ORAL)
     Route: 048
     Dates: start: 20070910, end: 20070925
  3. MOPRAL /00661201/ (MOPRAL - OMEPRAZOLE) 20 MG [Suspect]
     Indication: DRUG USE FOR UNKNOWN INDICATION
     Dosage: (DF ORAL)
     Route: 048
  4. CHLORAMINOPHENE (CHLORAMINOPHENE - CHLORAMBUCIL) 2 MG [Suspect]
     Indication: DRUG USE FOR UNKNOWN INDICATION
     Dosage: (DF ORAL)
     Route: 048
  5. PYOSTACINE (PYOSTACINE - PRISTINAMYCIN) (NOT SPECIFIED) [Suspect]
     Indication: DRUG USE FOR UNKNOWN INDICATION
     Dosage: (4 DF QD ORAL)
     Route: 048
     Dates: start: 20070917, end: 20070928
  6. CORTANCYL [Concomitant]
  7. PHLOROGLUCINOL [Concomitant]
  8. POTASSIUM CHLORIDE [Concomitant]
  9. LANSOYL [Concomitant]
  10. TRACE METAL ADDITIVE IN NACL [Concomitant]
  11. CALCIDOSE [Concomitant]

REACTIONS (4)
  - AGRANULOCYTOSIS [None]
  - CANDIDIASIS [None]
  - DRUG TOXICITY [None]
  - URINARY TRACT INFECTION FUNGAL [None]
